FAERS Safety Report 6637087-1 (Version None)
Quarter: 2010Q1

REPORT INFORMATION
  Report Type: 
  Country: None (occurrence: None)
  Receive Date: 20100316
  Receipt Date: 20100311
  Transmission Date: 20100710
  Serious: Yes (Death)
  Sender: FDA-Public Use
  Company Number: JP-BRACCO-003146

PATIENT
  Sex: Male

DRUGS (21)
  1. IOPAMIDOL [Suspect]
     Indication: COMPUTERISED TOMOGRAM
     Route: 042
     Dates: start: 20100126, end: 20100126
  2. IOPAMIDOL [Suspect]
     Indication: PANCREATIC CARCINOMA
     Route: 042
     Dates: start: 20100126, end: 20100126
  3. PENFILL 30R CHU [Concomitant]
     Indication: DIABETES MELLITUS
     Route: 058
  4. HALCION [Concomitant]
     Indication: INSOMNIA
     Route: 048
  5. CODEINE SULFATE [Concomitant]
     Indication: COUGH
     Route: 048
  6. GASTER D [Concomitant]
     Indication: GASTRIC ULCER
     Route: 048
  7. OMNIPAQUE 140 [Concomitant]
     Route: 065
  8. OYPALOMIN [Concomitant]
     Route: 065
  9. IOMERON-150 [Concomitant]
     Route: 065
  10. GLYCYRON [Concomitant]
     Indication: ANTIVIRAL PROPHYLAXIS
     Route: 048
  11. MAGMITT [Concomitant]
     Indication: CONSTIPATION
     Route: 048
  12. ARTIST [Concomitant]
     Indication: HYPERTENSION
     Route: 048
  13. FOIPAN [Concomitant]
     Indication: PALLIATIVE CARE
     Route: 048
  14. HALFDIGOXIN [Concomitant]
     Indication: HYPERTENSION
     Route: 048
  15. MIYA-BM [Concomitant]
     Indication: GASTROINTESTINAL HYPOMOTILITY
     Route: 048
  16. LASIX [Concomitant]
     Indication: OEDEMA
     Route: 048
  17. DEPAS [Concomitant]
     Indication: INSOMNIA
     Route: 048
  18. GASMOTIN [Concomitant]
     Indication: GASTROINTESTINAL HYPOMOTILITY
     Route: 048
  19. COLDRIN [Concomitant]
     Indication: COUGH
     Route: 048
  20. CRESTOR [Concomitant]
     Indication: HYPERLIPIDAEMIA
     Route: 048
  21. IOPAMIDOL [Concomitant]
     Route: 065
     Dates: start: 20091224, end: 20091224

REACTIONS (1)
  - ANAPHYLACTIC SHOCK [None]
